FAERS Safety Report 22835614 (Version 2)
Quarter: 2023Q4

REPORT INFORMATION
  Report Type: Spontaneous
  Country: CA (occurrence: CA)
  Receive Date: 20230818
  Receipt Date: 20231228
  Transmission Date: 20240110
  Serious: Yes (Other)
  Sender: FDA-Public Use
  Company Number: CA-ABBVIE-5369849

PATIENT
  Age: 45 Year
  Sex: Female
  Weight: 55 kg

DRUGS (10)
  1. HUMIRA [Suspect]
     Active Substance: ADALIMUMAB
     Indication: Product used for unknown indication
     Route: 058
     Dates: end: 202209
  2. TYLENOL [Concomitant]
     Active Substance: ACETAMINOPHEN
     Indication: Product used for unknown indication
  3. ATIVAN [Concomitant]
     Active Substance: LORAZEPAM
     Indication: Product used for unknown indication
  4. INFLECTRA [Suspect]
     Active Substance: INFLIXIMAB-DYYB
     Indication: Crohn^s disease
     Dosage: FREQUENCY TEXT: WEEK 0 THEN MAINTENANCE EVERY 8 WEEK?FREQUENCY TEXT:  2 INDUCTION DOSE
     Route: 042
     Dates: start: 20230216, end: 20230307
  5. INFLECTRA [Suspect]
     Active Substance: INFLIXIMAB-DYYB
     Indication: Crohn^s disease
     Dosage: FREQUENCY TEXT: AFTER 8 WEEK?FOURTH REGIMEN?DRUG END DATE: 2023
     Route: 042
     Dates: start: 20230529
  6. INFLECTRA [Suspect]
     Active Substance: INFLIXIMAB-DYYB
     Indication: Crohn^s disease
     Dosage: 275.5 MG (5 MG/KG)?FIFTH REGIMEN ?(275.5 MG (5 MG/KG), EVERY 6 WEEKS)
     Route: 042
     Dates: start: 20230710
  7. INFLECTRA [Suspect]
     Active Substance: INFLIXIMAB-DYYB
     Indication: Crohn^s disease
     Dosage: FREQUENCY TEXT:  2 INDUCTION DOSE, WEEK 2
     Route: 042
     Dates: start: 20230305, end: 20230529
  8. INFLECTRA [Suspect]
     Active Substance: INFLIXIMAB-DYYB
     Indication: Crohn^s disease
     Dosage: FREQUENCY TEXT: AFTER 8 WEEK?FREQUENCY TEXT:  2 INDUCTION DOSE?(WEEK 6)
     Route: 042
     Dates: start: 20230307, end: 20230405
  9. REMICADE [Concomitant]
     Active Substance: INFLIXIMAB
     Indication: Product used for unknown indication
  10. Tecta (Pantoprazole hemimagnesium hydrate) [Concomitant]
     Indication: Product used for unknown indication

REACTIONS (24)
  - Uveitis [Not Recovered/Not Resolved]
  - Muscular weakness [Unknown]
  - Lower respiratory tract infection [Unknown]
  - Bowel movement irregularity [Not Recovered/Not Resolved]
  - Proctalgia [Recovered/Resolved]
  - COVID-19 [Not Recovered/Not Resolved]
  - Gastric ulcer [Not Recovered/Not Resolved]
  - Drain placement [Unknown]
  - Arthralgia [Not Recovered/Not Resolved]
  - Dyspepsia [Recovered/Resolved]
  - Therapeutic response shortened [Unknown]
  - Proctalgia [Not Recovered/Not Resolved]
  - Crohn^s disease [Not Recovered/Not Resolved]
  - Asthenia [Not Recovered/Not Resolved]
  - Aphthous ulcer [Recovered/Resolved]
  - Muscular weakness [Not Recovered/Not Resolved]
  - Fistula [Not Recovered/Not Resolved]
  - Balance disorder [Not Recovered/Not Resolved]
  - Frequent bowel movements [Not Recovered/Not Resolved]
  - Anorectal swelling [Recovered/Resolved]
  - Anorectal discomfort [Recovered/Resolved]
  - Inappropriate schedule of product administration [Not Recovered/Not Resolved]
  - Eye swelling [Not Recovered/Not Resolved]
  - Nervousness [Not Recovered/Not Resolved]

NARRATIVE: CASE EVENT DATE: 20230101
